FAERS Safety Report 12838847 (Version 2)
Quarter: 2016Q4

REPORT INFORMATION
  Report Type: Spontaneous
  Country: US (occurrence: US)
  Receive Date: 20161012
  Receipt Date: 20161227
  Transmission Date: 20170207
  Serious: No
  Sender: FDA-Public Use
  Company Number: US-PFIZER INC-2016466997

PATIENT
  Age: 67 Year
  Sex: Female
  Weight: 64 kg

DRUGS (4)
  1. LYRICA [Suspect]
     Active Substance: PREGABALIN
     Indication: FIBROMYALGIA
     Dosage: 50 MG, 3X/DAY
     Dates: start: 201609, end: 2016
  2. LYRICA [Suspect]
     Active Substance: PREGABALIN
     Dosage: UNK, 1X/DAY
     Dates: start: 2016, end: 2016
  3. LYRICA [Suspect]
     Active Substance: PREGABALIN
     Indication: ARTHRALGIA
     Dosage: 50 MG, 2X/DAY
     Dates: start: 2016, end: 2016
  4. AMBIEN [Concomitant]
     Active Substance: ZOLPIDEM TARTRATE
     Indication: INSOMNIA
     Dosage: 5 MG, 1X/DAY
     Dates: start: 1996

REACTIONS (3)
  - Hypersomnia [Unknown]
  - Intentional product use issue [Recovered/Resolved]
  - Peripheral swelling [Recovered/Resolved]

NARRATIVE: CASE EVENT DATE: 2016
